FAERS Safety Report 20566280 (Version 1)
Quarter: 2022Q1

REPORT INFORMATION
  Report Type: Spontaneous
  Country: US (occurrence: US)
  Receive Date: 20220308
  Receipt Date: 20220308
  Transmission Date: 20220423
  Serious: Yes (Hospitalization)
  Sender: FDA-Public Use
  Company Number: US-UPSHER-SMITH LABORATORIES, LLC-2022USL00126

PATIENT
  Sex: Female

DRUGS (1)
  1. VIGADRONE [Suspect]
     Active Substance: VIGABATRIN
     Dosage: UNK, 2X/DAY (UNKNOWN MORNING DOSE, 10 ML EVENING DOSE)
     Dates: start: 20220211

REACTIONS (5)
  - Infantile spasms [Recovered/Resolved]
  - Heart rate decreased [Not Recovered/Not Resolved]
  - Weight decreased [Unknown]
  - Product dose omission issue [Recovered/Resolved]
  - Vomiting [Recovered/Resolved]

NARRATIVE: CASE EVENT DATE: 20220201
